FAERS Safety Report 8576371-1 (Version None)
Quarter: 2012Q3

REPORT INFORMATION
  Report Type: 
  Country: None (occurrence: None)
  Receive Date: 20120807
  Receipt Date: 20120727
  Transmission Date: 20120928
  Serious: Yes (Disabling, Other)
  Sender: FDA-Public Use
  Company Number: US-CELGENEUS-163-21880-12071678

PATIENT
  Sex: Male
  Weight: 73.9 kg

DRUGS (36)
  1. SLOW-MAG [Concomitant]
     Route: 065
  2. MS CONTIN [Concomitant]
     Dosage: 60 MILLIGRAM
     Route: 048
     Dates: start: 20090825
  3. MOM [Concomitant]
     Route: 065
     Dates: start: 20091110
  4. KLOR-CON [Concomitant]
     Dosage: 40 MILLIEQUIVALENTS
     Route: 065
  5. LASIX [Concomitant]
     Dosage: 20 MILLIGRAM
     Route: 065
  6. ATROVENT [Concomitant]
     Route: 065
  7. REVLIMID [Suspect]
     Indication: MULTIPLE MYELOMA
     Dosage: 15 MILLIGRAM
     Route: 048
     Dates: start: 20090825
  8. COUMADIN [Concomitant]
     Route: 065
  9. MORPHINE SULFATE [Concomitant]
     Dosage: 10 MILLIGRAM
     Route: 065
     Dates: start: 20091110
  10. NEXIUM [Concomitant]
     Dosage: 40 MILLIGRAM
     Route: 065
     Dates: start: 20090825
  11. MUCINEX [Concomitant]
     Indication: COUGH
     Route: 048
  12. VELCADE [Concomitant]
     Route: 065
  13. ALDACTONE [Concomitant]
     Dosage: 50 MILLIGRAM
     Route: 065
  14. ASPIRIN [Concomitant]
     Dosage: 81 MILLIGRAM
     Route: 065
  15. KLOR-CON [Concomitant]
     Dosage: 20 MILLIEQUIVALENTS
     Route: 065
     Dates: start: 20090825
  16. SLOW-MAG [Concomitant]
     Route: 065
  17. AMIODARONE HCL [Concomitant]
     Dosage: 200 MILLIGRAM
     Route: 065
     Dates: start: 20090825
  18. REVLIMID [Suspect]
     Indication: AMYLOIDOSIS
     Dosage: 15 MILLIGRAM
     Route: 048
     Dates: start: 20101209
  19. CYTOXAN [Concomitant]
     Dosage: 7.1429 MILLIGRAM
     Route: 065
  20. SPIRIVA [Concomitant]
     Route: 065
  21. ALBUTEROL [Concomitant]
     Route: 065
  22. ASCORBIC ACID [Concomitant]
     Route: 065
  23. PREDNISONE [Concomitant]
     Dosage: 2.5 MILLIGRAM
     Route: 065
  24. PROTONIX [Concomitant]
     Dosage: 40 MILLIGRAM
     Route: 065
     Dates: start: 20090825
  25. CORDARONE [Concomitant]
     Dosage: 200 MILLIGRAM
     Route: 065
     Dates: start: 20091110
  26. CORDARONE [Concomitant]
     Dosage: 100 MILLIGRAM
     Route: 065
     Dates: start: 20090825
  27. ALDACTONE [Concomitant]
     Dosage: 25 MILLIGRAM
     Route: 065
     Dates: start: 20090825
  28. LASIX [Concomitant]
     Dosage: 40 MILLIGRAM
     Route: 065
     Dates: start: 20090825
  29. DULCOLAX [Concomitant]
     Route: 065
     Dates: start: 20090825
  30. OXYGEN [Concomitant]
     Route: 065
  31. GUAIFENESIN [Concomitant]
     Dosage: AS DIRECTED
     Route: 065
     Dates: start: 20090825
  32. SENNA-MINT WAF [Concomitant]
     Dosage: AS DIRECTED
     Route: 048
     Dates: start: 20090825
  33. DECADRON PHOSPHATE [Concomitant]
     Dosage: 20 MILLIGRAM
     Route: 065
  34. MORPHINE SULFATE [Concomitant]
     Dosage: 120 MILLIGRAM
     Route: 065
     Dates: start: 20090825
  35. PREDNISONE [Concomitant]
     Dosage: 5 MILLIGRAM
     Route: 065
  36. ZAROXOLYN [Concomitant]
     Route: 065
     Dates: start: 20090825

REACTIONS (1)
  - DYSPNOEA EXERTIONAL [None]
